FAERS Safety Report 4676137-9 (Version None)
Quarter: 2005Q2

REPORT INFORMATION
  Report Type: 
  Country: None (occurrence: None)
  Receive Date: 20050527
  Receipt Date: 20050404
  Transmission Date: 20051028
  Serious: No
  Sender: FDA-Public Use
  Company Number: US-GLAXOSMITHKLINE-A0552616A

PATIENT
  Age: 53 Year
  Sex: Female

DRUGS (16)
  1. WELLBUTRIN XL [Suspect]
     Indication: DEPRESSION
     Dosage: 100MG PER DAY
     Route: 048
     Dates: start: 20050101
  2. WELLBUTRIN SR [Suspect]
     Indication: DEPRESSION
     Dosage: 100MG TWICE PER DAY
     Route: 048
  3. SYNTHROID [Concomitant]
  4. PREVACID [Concomitant]
  5. DEMADEX [Concomitant]
  6. ALTACE [Concomitant]
  7. CLARITIN [Concomitant]
  8. GLUCOPHAGE [Concomitant]
  9. LIPITOR [Concomitant]
  10. RISPERDAL [Concomitant]
  11. SINGULAIR [Concomitant]
  12. ASPIRIN [Concomitant]
  13. COLACE [Concomitant]
  14. XALATAN [Concomitant]
  15. MIRALAX [Concomitant]
  16. ADVAIR DISKUS 100/50 [Concomitant]

REACTIONS (1)
  - WEIGHT INCREASED [None]
